FAERS Safety Report 4447955-7 (Version None)
Quarter: 2004Q3

REPORT INFORMATION
  Report Type: 
  Country: None (occurrence: None)
  Receive Date: 20040812
  Receipt Date: 20040614
  Transmission Date: 20050211
  Serious: No
  Sender: FDA-Public Use
  Company Number: USA040670038

PATIENT
  Age: 86 Year
  Sex: Male

DRUGS (1)
  1. CIALIS [Suspect]
     Dosage: 20 MG
     Dates: start: 20040201

REACTIONS (2)
  - CYSTITIS [None]
  - THERAPEUTIC RESPONSE DECREASED [None]
